FAERS Safety Report 15583390 (Version 1)
Quarter: 2018Q4

REPORT INFORMATION
  Report Type: Spontaneous
  Country: HR (occurrence: HR)
  Receive Date: 20181103
  Receipt Date: 20181103
  Transmission Date: 20190205
  Serious: Yes (Other)
  Sender: FDA-Public Use
  Company Number: HR-TEVA-2018-HR-971117

PATIENT
  Sex: Female
  Weight: 60 kg

DRUGS (2)
  1. PARACETAMOL [Suspect]
     Active Substance: ACETAMINOPHEN
     Dosage: 1 GRAM DAILY;
     Route: 048
     Dates: start: 20180914, end: 20180914
  2. IBUPROFEN. [Suspect]
     Active Substance: IBUPROFEN
     Dosage: 8 GRAM DAILY;
     Route: 048
     Dates: start: 20180914, end: 20180914

REACTIONS (3)
  - Suicide attempt [Unknown]
  - Intentional overdose [Unknown]
  - No adverse event [Unknown]

NARRATIVE: CASE EVENT DATE: 20180914
